FAERS Safety Report 5373168-0 (Version None)
Quarter: 2007Q2

REPORT INFORMATION
  Report Type: 
  Country: None (occurrence: None)
  Receive Date: 20070626
  Receipt Date: 20070615
  Transmission Date: 20071010
  Serious: Yes (Hospitalization)
  Sender: FDA-Public Use
  Company Number: 2007BI013104

PATIENT
  Age: 52 Year
  Sex: Female

DRUGS (1)
  1. NATALIZUMAB [Suspect]
     Indication: MULTIPLE SCLEROSIS
     Dosage: 300 MG;QM;IV
     Route: 030
     Dates: start: 20060830

REACTIONS (5)
  - GAIT DISTURBANCE [None]
  - INFECTION [None]
  - MUSCLE SPASMS [None]
  - PROCEDURAL PAIN [None]
  - WHITE BLOOD CELL COUNT INCREASED [None]
